FAERS Safety Report 12733802 (Version 1)
Quarter: 2016Q3

REPORT INFORMATION
  Report Type: Spontaneous
  Country: US (occurrence: US)
  Receive Date: 20160912
  Receipt Date: 20160912
  Transmission Date: 20161109
  Serious: No
  Sender: FDA-Public Use
  Company Number: US-JNJFOC-20160728546

PATIENT

DRUGS (3)
  1. DILTIAZEM. [Suspect]
     Active Substance: DILTIAZEM
     Indication: PRODUCT USED FOR UNKNOWN INDICATION
     Route: 065
     Dates: start: 201607
  2. KEFLEX [Suspect]
     Active Substance: CEPHALEXIN
     Indication: PRODUCT USED FOR UNKNOWN INDICATION
     Route: 065
     Dates: start: 201607
  3. XARELTO [Suspect]
     Active Substance: RIVAROXABAN
     Indication: PRODUCT USED FOR UNKNOWN INDICATION
     Route: 048
     Dates: start: 201607

REACTIONS (1)
  - Rash [Not Recovered/Not Resolved]

NARRATIVE: CASE EVENT DATE: 201607
